FAERS Safety Report 7391876-7 (Version None)
Quarter: 2011Q2

REPORT INFORMATION
  Report Type: 
  Country: None (occurrence: None)
  Receive Date: 20110404
  Receipt Date: 20110329
  Transmission Date: 20111010
  Serious: Yes (Other)
  Sender: FDA-Public Use
  Company Number: MX-ROCHE-768424

PATIENT
  Sex: Female
  Weight: 52 kg

DRUGS (8)
  1. CALTRATE 600 + D [Concomitant]
     Indication: PROPHYLAXIS
     Dosage: FREQUENCY: QD
     Route: 048
     Dates: start: 20050101
  2. SIMVASTATIN [Concomitant]
     Dosage: FREQUENCY: EVERY THIRD DAY
     Route: 048
     Dates: start: 20100301, end: 20100301
  3. ASCORBIC ACID [Concomitant]
     Indication: THERAPEUTIC PROCEDURE
     Dosage: FREQUENCY: 1 X QD
     Route: 048
     Dates: start: 20091101
  4. CENTRUM [Concomitant]
     Dosage: FREQUENCY: AS PER NECESSARY
     Route: 048
  5. BONIVA [Suspect]
     Indication: OSTEOPOROSIS
     Route: 048
     Dates: start: 20091128, end: 20110228
  6. PRAVASTATIN [Concomitant]
     Route: 048
     Dates: start: 20091101, end: 20100301
  7. VITAMIN E [Concomitant]
     Indication: THERAPEUTIC PROCEDURE
     Dosage: FREQUENCY: 1 X QD, INDICATION: ANTIXOIDANT
     Route: 048
     Dates: start: 20091101
  8. STRESSTABS [Concomitant]
     Dosage: FREQUENCY: AS PER NECESSARY
     Route: 048

REACTIONS (8)
  - TOOTH ABSCESS [None]
  - OESOPHAGEAL PAIN [None]
  - GASTROOESOPHAGEAL REFLUX DISEASE [None]
  - DIZZINESS [None]
  - TOOTHACHE [None]
  - MYALGIA [None]
  - DYSPEPSIA [None]
  - ARTHRALGIA [None]
